FAERS Safety Report 18021602 (Version 10)
Quarter: 2021Q4

REPORT INFORMATION
  Report Type: 
  Country: None (occurrence: None)
  Receive Date: 20200714
  Receipt Date: 20211109
  Transmission Date: 20220303
  Serious: Yes (Other)
  Sender: FDA-Public Use
  Company Number: None

PATIENT
  Age: 28 Year
  Sex: Female

DRUGS (1)
  1. MYORISAN [Suspect]
     Active Substance: ISOTRETINOIN

REACTIONS (5)
  - Exposure during pregnancy [Recovered/Resolved]
  - Off label use [Recovered/Resolved]
  - Gestational diabetes [Recovered/Resolved]
  - Nephrolithiasis [Recovered/Resolved]
  - Underweight [Recovered/Resolved]
